FAERS Safety Report 7408012-0 (Version None)
Quarter: 2011Q2

REPORT INFORMATION
  Report Type: 
  Country: None (occurrence: None)
  Receive Date: 20110412
  Receipt Date: 20110408
  Transmission Date: 20111010
  Serious: No
  Sender: FDA-Public Use
  Company Number: US-PFIZER INC-2011078382

PATIENT
  Sex: Male

DRUGS (3)
  1. LIPITOR [Concomitant]
     Dosage: UNK
  2. CALAN - SLOW RELEASE [Concomitant]
     Dosage: UNK
  3. ZOLOFT [Suspect]
     Indication: DEPRESSION
     Dosage: UNK

REACTIONS (1)
  - DRUG INEFFECTIVE [None]
